FAERS Safety Report 9467591 (Version 5)
Quarter: 2014Q3

REPORT INFORMATION
  Report Type: Report from Study
  Country: JP (occurrence: JP)
  Receive Date: 20130821
  Receipt Date: 20140929
  Transmission Date: 20150326
  Serious: Yes (Hospitalization)
  Sender: FDA-Public Use
  Company Number: JP-SHIRE-CQT4-2013-00005

PATIENT
  Age: 16 Year
  Sex: Male
  Weight: 49.5 kg

DRUGS (7)
  1. NADIFLOXACIN [Concomitant]
     Active Substance: NADIFLOXACIN
     Indication: ACNE
     Dosage: UNK
     Route: 062
     Dates: start: 201107
  2. VELAGLUCERASE ALFA [Suspect]
     Active Substance: VELAGLUCERASE ALFA
     Indication: GAUCHER^S DISEASE
     Dosage: 2828 IU, 1X/2WKS (8 VIALS)
     Route: 041
     Dates: start: 20130607
  3. FLUOROMETHOLONE. [Concomitant]
     Active Substance: FLUOROMETHOLONE
     Indication: PROPHYLAXIS
     Dosage: UNK
     Route: 050
     Dates: start: 20130622, end: 20130828
  4. VELAGLUCERASE ALFA [Suspect]
     Active Substance: VELAGLUCERASE ALFA
     Dosage: 2800 IU, 1X/2WKS (7 VIALS)
     Route: 041
     Dates: start: 20120609, end: 20130525
  5. BROMFENAC SODIUM [Concomitant]
     Active Substance: BROMFENAC SODIUM
     Indication: PROPHYLAXIS
     Dosage: UNK
     Route: 050
     Dates: start: 20130107, end: 20131030
  6. CEFCAPENE PIVOXIL HYDROCHLORIDE [Concomitant]
     Active Substance: CEFCAPENE PIVOXIL HYDROCHLORIDE
     Indication: UPPER RESPIRATORY TRACT INFECTION
     Dosage: UNK
     Route: 048
     Dates: start: 20130808, end: 20130812
  7. LEVOFLOXACIN HEMIHYDRATE [Concomitant]
     Active Substance: LEVOFLOXACIN
     Indication: INFECTION PROPHYLAXIS
     Dosage: UNK
     Dates: start: 20130107, end: 20131030

REACTIONS (1)
  - Vitreous opacities [Recovering/Resolving]

NARRATIVE: CASE EVENT DATE: 20130812
